FAERS Safety Report 23260273 (Version 1)
Quarter: 2023Q4

REPORT INFORMATION
  Report Type: Spontaneous
  Country: ES (occurrence: ES)
  Receive Date: 20231204
  Receipt Date: 20231204
  Transmission Date: 20240109
  Serious: Yes (Life-Threatening)
  Sender: FDA-Public Use
  Company Number: None

PATIENT
  Sex: Male

DRUGS (1)
  1. CONCERTA [Suspect]
     Active Substance: METHYLPHENIDATE HYDROCHLORIDE
     Indication: Product used for unknown indication
     Route: 065
     Dates: start: 20231021, end: 20231021

REACTIONS (3)
  - Cardio-respiratory arrest [Recovered/Resolved]
  - Product prescribing error [Recovered/Resolved]
  - Ventricular fibrillation [Recovered/Resolved]

NARRATIVE: CASE EVENT DATE: 20231021
